FAERS Safety Report 22044486 (Version 3)
Quarter: 2023Q2

REPORT INFORMATION
  Report Type: Spontaneous
  Country: US (occurrence: US)
  Receive Date: 20230228
  Receipt Date: 20230522
  Transmission Date: 20230721
  Serious: Yes (Other)
  Sender: FDA-Public Use
  Company Number: US-BRISTOL-MYERS SQUIBB COMPANY-2023-028734

PATIENT
  Age: 66 Year
  Sex: Female

DRUGS (2)
  1. REVLIMID [Suspect]
     Active Substance: LENALIDOMIDE
     Indication: Diffuse large B-cell lymphoma
     Dosage: TAKE 1 CAPSULE BY MOUTH EVERY OTHER DAY FOR 14 DAYS THEN STOP FOR 7 DAYS TO COMPLETE 21 DAY
     Route: 048
     Dates: start: 20230224
  2. REVLIMID [Suspect]
     Active Substance: LENALIDOMIDE
     Dosage: FREQUENCY: TAKE 1 CAPSULE BY MOUTH EVERY OTHER DAY FOR 14 DAYS THEN STOP FOR 7 DAYS TO COMPLETE 21 D
     Route: 048

REACTIONS (5)
  - Illness [Unknown]
  - Injury [Unknown]
  - Off label use [Unknown]
  - Full blood count decreased [Unknown]
  - Neutrophil count decreased [Recovered/Resolved]
